FAERS Safety Report 7771158-1 (Version None)
Quarter: 2011Q3

REPORT INFORMATION
  Report Type: 
  Country: None (occurrence: None)
  Receive Date: 20110922
  Receipt Date: 20110418
  Transmission Date: 20111222
  Serious: No
  Sender: FDA-Public Use
  Company Number: US-ASTRAZENECA-2009SE09798

PATIENT
  Age: 54 Year
  Sex: Female
  Weight: 158.8 kg

DRUGS (3)
  1. SEROQUEL [Suspect]
     Indication: BIPOLAR DISORDER
     Dosage: 25 MG TO 300 MG
     Route: 048
     Dates: start: 20020101, end: 20080101
  2. SEROQUEL [Suspect]
     Dosage: 25 MG TO 300 MG
     Route: 048
     Dates: start: 20110301
  3. GEODON [Concomitant]
     Dates: start: 20090101, end: 20100101

REACTIONS (6)
  - HYPERLIPIDAEMIA [None]
  - BLOOD CHOLESTEROL INCREASED [None]
  - TYPE 2 DIABETES MELLITUS [None]
  - BLOOD TRIGLYCERIDES INCREASED [None]
  - NEPHROLITHIASIS [None]
  - OBESITY [None]
